FAERS Safety Report 20508434 (Version 4)
Quarter: 2022Q2

REPORT INFORMATION
  Report Type: Report from Study
  Country: US (occurrence: US)
  Receive Date: 20220223
  Receipt Date: 20220420
  Transmission Date: 20220721
  Serious: Yes (Hospitalization, Other)
  Sender: FDA-Public Use
  Company Number: US-NOVARTISPH-NVSC2022US037887

PATIENT
  Sex: Male

DRUGS (2)
  1. ENTRESTO [Suspect]
     Active Substance: SACUBITRIL\VALSARTAN
     Indication: Cardiac disorder
     Dosage: 24.26 MG, BID
     Route: 048
  2. ENTRESTO [Suspect]
     Active Substance: SACUBITRIL\VALSARTAN
     Dosage: UNK
     Route: 048

REACTIONS (8)
  - Atrial fibrillation [Unknown]
  - Myocardial infarction [Unknown]
  - Cardiac failure [Unknown]
  - Abdominal pain upper [Unknown]
  - Gait disturbance [Unknown]
  - Abdominal discomfort [Unknown]
  - Asthenia [Unknown]
  - Product use in unapproved indication [Unknown]
